FAERS Safety Report 18489625 (Version 4)
Quarter: 2020Q4

REPORT INFORMATION
  Report Type: Spontaneous
  Country: ES (occurrence: ES)
  Receive Date: 20201111
  Receipt Date: 20201207
  Transmission Date: 20210114
  Serious: Yes (Hospitalization, Other)
  Sender: FDA-Public Use
  Company Number: ES-AUROBINDO-AUR-APL-2020-055080

PATIENT
  Age: 64 Year
  Sex: Male

DRUGS (10)
  1. SIMVASTATIN. [Concomitant]
     Active Substance: SIMVASTATIN
     Indication: DYSLIPIDAEMIA
     Dosage: 20 MILLIGRAM, ONCE A DAY
     Route: 065
  2. ALCOHOL. [Suspect]
     Active Substance: ALCOHOL
     Indication: PRODUCT USED FOR UNKNOWN INDICATION
     Dosage: 600 GRAM, DAILY
     Route: 048
  3. OMEPRAZOLE. [Concomitant]
     Active Substance: OMEPRAZOLE
     Indication: PRODUCT USED FOR UNKNOWN INDICATION
     Dosage: 20 MILLIGRAM, ONCE A DAY
     Route: 065
  4. ALCOHOL. [Suspect]
     Active Substance: ALCOHOL
     Indication: PRODUCT USED FOR UNKNOWN INDICATION
     Dosage: 600 MILLIGRAM, DAILY
     Route: 048
  5. LEVETIRACETAM. [Suspect]
     Active Substance: LEVETIRACETAM
     Indication: SEIZURE PROPHYLAXIS
     Dosage: 1000 MILLIGRAM, ONCE A DAY
     Route: 065
  6. LEVETIRACETAM. [Suspect]
     Active Substance: LEVETIRACETAM
     Indication: SEIZURE
     Dosage: 100 MILLIGRAM, ONCE A DAY
     Route: 065
  7. ACICLOVIR [Concomitant]
     Active Substance: ACYCLOVIR
     Indication: ENCEPHALITIS
     Dosage: UNK
     Route: 065
  8. VIMPAT [Suspect]
     Active Substance: LACOSAMIDE
     Indication: SEIZURE PROPHYLAXIS
     Dosage: 200 MILLIGRAM, ONCE A DAY
     Route: 065
  9. NIMODIPINE. [Concomitant]
     Active Substance: NIMODIPINE
     Indication: PRODUCT USED FOR UNKNOWN INDICATION
     Dosage: 30 MILLIGRAM, ONCE A DAY
     Route: 065
  10. UROLOSIN [Concomitant]
     Active Substance: TAMSULOSIN HYDROCHLORIDE
     Indication: BENIGN PROSTATIC HYPERPLASIA
     Dosage: 0.4 MILLIGRAM, ONCE A DAY
     Route: 065

REACTIONS (3)
  - Alcohol abuse [Recovered/Resolved]
  - Off label use [Unknown]
  - Behaviour disorder [Recovered/Resolved]
